FAERS Safety Report 25244988 (Version 1)
Quarter: 2025Q2

REPORT INFORMATION
  Report Type: Spontaneous
  Country: US (occurrence: US)
  Receive Date: 20250428
  Receipt Date: 20250428
  Transmission Date: 20250717
  Serious: Yes (Hospitalization, Other)
  Sender: TEVA
  Company Number: US-TEVA-VS-3324343

PATIENT
  Age: 20 Year
  Sex: Male

DRUGS (2)
  1. UZEDY [Suspect]
     Active Substance: RISPERIDONE
     Indication: Schizophrenia
     Dosage: THE PRESCRIBER REDUCED THE DOSING TO 50 MG EVERY FOUR WEEKS. THE PATIENT?DECOMPENSATED AFTER TWO ...
     Route: 065
     Dates: start: 2024
  2. RISPERIDONE [Suspect]
     Active Substance: RISPERIDONE
     Indication: Schizophrenia
     Dosage: HE INCREASED THAT TO 2.5 ORAL. THE PATIENT STABILIZED. THEN HE PUT THE PATIENT BACK ON?UZEDY 150 ...
     Route: 048

REACTIONS (4)
  - Hospitalisation [Unknown]
  - Parkinsonism [Unknown]
  - Nervous system disorder [Unknown]
  - Oculogyric crisis [Unknown]
